FAERS Safety Report 12528092 (Version 3)
Quarter: 2016Q3

REPORT INFORMATION
  Report Type: Spontaneous
  Country: US (occurrence: US)
  Receive Date: 20160705
  Receipt Date: 20160920
  Transmission Date: 20161109
  Serious: No
  Sender: FDA-Public Use
  Company Number: US-PFIZER INC-2015278293

PATIENT
  Age: 49 Year
  Sex: Male

DRUGS (24)
  1. GRALISE [Concomitant]
     Active Substance: GABAPENTIN
     Dosage: 1800 MG, 1X/DAY AT DINNER
     Route: 048
     Dates: start: 20140902
  2. LANTUS SOLOSTAR [Concomitant]
     Active Substance: INSULIN GLARGINE
     Dosage: 70 IU, DAILY
     Route: 058
     Dates: start: 20130624
  3. TAMSULOSIN HCL [Concomitant]
     Active Substance: TAMSULOSIN
     Dosage: 0.4 MG, 2X/DAY
     Route: 048
     Dates: start: 20131113
  4. LYRICA [Suspect]
     Active Substance: PREGABALIN
     Indication: ALCOHOLIC LIVER DISEASE
  5. UREA. [Concomitant]
     Active Substance: UREA
     Dosage: 40 %, UNK
     Dates: start: 20131113
  6. WELLBUTRIN SR [Concomitant]
     Active Substance: BUPROPION HYDROCHLORIDE
     Dosage: 150 MG, 2X/DAY
     Route: 048
     Dates: start: 20140910
  7. CREON [Concomitant]
     Active Substance: PANCRELIPASE AMYLASE\PANCRELIPASE LIPASE\PANCRELIPASE PROTEASE
     Dosage: 2400 IU, 2 CAPS + 1 CAPS, NO MORE THAN 7 PILLS DAILY
     Route: 048
  8. METFORMIN HCL [Concomitant]
     Active Substance: METFORMIN HYDROCHLORIDE
     Dosage: 1000 MG, 2X/DAY
     Route: 048
     Dates: start: 20100327
  9. OMEPRAZOLE. [Concomitant]
     Active Substance: OMEPRAZOLE
     Dosage: 40 MG, 1X/DAY
     Route: 048
     Dates: start: 19950101
  10. TRAMADOL HCL [Concomitant]
     Active Substance: TRAMADOL HYDROCHLORIDE
     Dosage: 50 MG, 4X/DAY AS NEEDED
     Route: 048
     Dates: start: 20130915
  11. LYRICA [Suspect]
     Active Substance: PREGABALIN
     Indication: DIABETIC NEUROPATHY
     Dosage: 100 MG, 3X/DAY
     Route: 048
     Dates: start: 20141119
  12. BUMETANIDE. [Concomitant]
     Active Substance: BUMETANIDE
     Dosage: 1 MG, 2X/DAY
     Route: 048
  13. SPIRONOLACTONE. [Concomitant]
     Active Substance: SPIRONOLACTONE
     Dosage: 50 MG, 2X/DAY
     Route: 048
     Dates: start: 20140226
  14. SYNTHROID [Concomitant]
     Active Substance: LEVOTHYROXINE SODIUM
     Dosage: 100 UG, DAILY
     Route: 048
     Dates: start: 20150127
  15. CHOLESTYRAMINE. [Concomitant]
     Active Substance: CHOLESTYRAMINE
     Dosage: [4G PACKET MIX HR CONTENTS OF 1 POWDER PACKET WITH 2-6 OZ OF NON-CARBONATED BEVERAGES], 3X/DAY
     Route: 048
  16. KLONOPIN [Concomitant]
     Active Substance: CLONAZEPAM
     Dosage: 1 MG, 1X/DAY BEDTIME
     Route: 048
     Dates: start: 20140226
  17. DIVALPROEX SODIUM. [Concomitant]
     Active Substance: DIVALPROEX SODIUM
     Dosage: 250 MG, 2X/DAY
     Route: 048
     Dates: start: 20140226
  18. MINOCYCLINE HCL [Concomitant]
     Active Substance: MINOCYCLINE HYDROCHLORIDE
     Dosage: 50 MG, 1X/DAY
     Route: 048
     Dates: start: 20141119
  19. LYRICA [Suspect]
     Active Substance: PREGABALIN
     Indication: TYPE 2 DIABETES MELLITUS
  20. CALCIUM 500+D [Concomitant]
     Active Substance: CALCIUM\VITAMIN D
     Dosage: 1 DF, 2X/DAY
  21. TRAZODONE HYDROCHLORIDE. [Concomitant]
     Active Substance: TRAZODONE HYDROCHLORIDE
     Indication: ANXIETY
     Dosage: 50 MG, 2X/DAY
     Route: 048
     Dates: start: 20140404
  22. FOLIC ACID. [Concomitant]
     Active Substance: FOLIC ACID
     Dosage: 1 MG, 1X/DAY
     Route: 048
     Dates: start: 20140226
  23. NEURONTIN [Concomitant]
     Active Substance: GABAPENTIN
     Dosage: 2 DF, 3X/DAY
     Route: 048
  24. NORCO [Concomitant]
     Active Substance: ACETAMINOPHEN\HYDROCODONE BITARTRATE
     Indication: PAIN
     Dosage: 5-325MG, AS NEEDED (EVERY SIX TO EIGHT HOURS) (HYDROCODONE:5MG; ACETAMINOPHEN: 325MG)
     Route: 048

REACTIONS (1)
  - Gait disturbance [Unknown]
